FAERS Safety Report 8356667 (Version 4)
Quarter: 2013Q3

REPORT INFORMATION
  Report Type: Spontaneous
  Country: DE (occurrence: DE)
  Receive Date: 20120126
  Receipt Date: 20130903
  Transmission Date: 20140515
  Serious: Yes (Hospitalization)
  Sender: FDA-Public Use
  Company Number: DE-GLAXOSMITHKLINE-D0064391A

PATIENT
  Age: 35 Year
  Sex: Male

DRUGS (9)
  1. VAQTA [Suspect]
     Indication: PROPHYLAXIS
     Route: 065
     Dates: start: 20000816, end: 20000816
  2. TD PUR [Suspect]
     Indication: PROPHYLAXIS
     Route: 065
     Dates: start: 19980928, end: 19980928
  3. TD PUR [Suspect]
     Indication: PROPHYLAXIS
     Route: 065
     Dates: start: 19981103, end: 19981103
  4. TD PUR [Suspect]
     Indication: PROPHYLAXIS
     Route: 065
     Dates: start: 19990611, end: 19990611
  5. IPV VIRELON [Concomitant]
     Indication: PROPHYLAXIS
     Route: 065
     Dates: start: 19980928, end: 19980928
  6. IPV VIRELON [Concomitant]
     Indication: PROPHYLAXIS
     Route: 065
     Dates: start: 19990611, end: 19990611
  7. STAMARIL [Concomitant]
     Indication: PROPHYLAXIS
     Route: 065
     Dates: start: 20000816, end: 20000816
  8. HAVRIX [Suspect]
     Indication: PROPHYLAXIS
     Route: 065
     Dates: start: 20010508, end: 20010508
  9. ITRACONAZOLE [Suspect]
     Route: 048

REACTIONS (16)
  - Myelitis transverse [Unknown]
  - Myelitis [Unknown]
  - Hypoaesthesia [Unknown]
  - Paraesthesia [Recovering/Resolving]
  - Coordination abnormal [Unknown]
  - Paraplegia [Unknown]
  - Cognitive disorder [Unknown]
  - Diarrhoea [Recovered/Resolved]
  - Irritable bowel syndrome [Unknown]
  - Gait disturbance [Recovered/Resolved]
  - Fatigue [Recovered/Resolved]
  - Malaise [Recovered/Resolved]
  - Asthenia [Unknown]
  - Vertigo [Recovered/Resolved]
  - Vaccination complication [Unknown]
  - Multiple sclerosis [Unknown]
